FAERS Safety Report 4901841-4 (Version None)
Quarter: 2006Q1

REPORT INFORMATION
  Report Type: 
  Country: None (occurrence: None)
  Receive Date: 20060202
  Receipt Date: 20060202
  Transmission Date: 20060701
  Serious: Yes (Other)
  Sender: FDA-Public Use
  Company Number: None

PATIENT

DRUGS (1)
  1. CURAFIL [Suspect]
     Indication: WOUND TREATMENT
     Dosage: TOPICAL GEL
     Route: 061

REACTIONS (2)
  - PAIN [None]
  - WOUND COMPLICATION [None]
